FAERS Safety Report 12153762 (Version 1)
Quarter: 2016Q1

REPORT INFORMATION
  Report Type: Spontaneous
  Country: US (occurrence: US)
  Receive Date: 20160307
  Receipt Date: 20160307
  Transmission Date: 20160526
  Serious: Yes (Hospitalization)
  Sender: FDA-Public Use
  Company Number: US-BEH-2016059305

PATIENT
  Age: 56 Year
  Sex: Female
  Weight: 83 kg

DRUGS (23)
  1. ACETAMINOPHEN. [Concomitant]
     Active Substance: ACETAMINOPHEN
  2. LIDOCAINE. [Concomitant]
     Active Substance: LIDOCAINE
  3. FUROSEMIDE. [Concomitant]
     Active Substance: FUROSEMIDE
  4. METFORMIN [Concomitant]
     Active Substance: METFORMIN HYDROCHLORIDE
  5. SIMVASTATIN. [Concomitant]
     Active Substance: SIMVASTATIN
  6. LISINOPRIL. [Concomitant]
     Active Substance: LISINOPRIL
  7. EPIPEN [Concomitant]
     Active Substance: EPINEPHRINE
  8. GABAPENTIN. [Concomitant]
     Active Substance: GABAPENTIN
  9. CARVEDILOL. [Concomitant]
     Active Substance: CARVEDILOL
  10. OMEPRAZOLE. [Concomitant]
     Active Substance: OMEPRAZOLE
  11. AUGMENT [Concomitant]
  12. PREMARIN [Concomitant]
     Active Substance: ESTROGENS, CONJUGATED
  13. LYRICA [Concomitant]
     Active Substance: PREGABALIN
  14. POTASSIUM CHLORIDE. [Concomitant]
     Active Substance: POTASSIUM CHLORIDE
  15. CARISOPRODOL. [Concomitant]
     Active Substance: CARISOPRODOL
  16. OXYCONTIN [Concomitant]
     Active Substance: OXYCODONE HYDROCHLORIDE
  17. HIZENTRA [Suspect]
     Active Substance: HUMAN IMMUNOGLOBULIN G
     Indication: IMMUNODEFICIENCY COMMON VARIABLE
     Dosage: 4 GM 20 ML VIALS
     Route: 058
     Dates: start: 20151019
  18. DIPHENHYDRAMINE. [Concomitant]
     Active Substance: DIPHENHYDRAMINE
  19. VENTOLIN [Concomitant]
     Active Substance: ALBUTEROL SULFATE
  20. SYMBICORT [Concomitant]
     Active Substance: BUDESONIDE\FORMOTEROL FUMARATE DIHYDRATE
  21. ZOLPIDEM [Concomitant]
     Active Substance: ZOLPIDEM\ZOLPIDEM TARTRATE
  22. PREDNISONE. [Concomitant]
     Active Substance: PREDNISONE
  23. REQUIP [Concomitant]
     Active Substance: ROPINIROLE HYDROCHLORIDE

REACTIONS (1)
  - Pneumonia [Unknown]

NARRATIVE: CASE EVENT DATE: 20160205
